FAERS Safety Report 19266498 (Version 2)
Quarter: 2021Q3

REPORT INFORMATION
  Report Type: Spontaneous
  Country: BE (occurrence: BE)
  Receive Date: 20210518
  Receipt Date: 20210708
  Transmission Date: 20211014
  Serious: Yes (Other)
  Sender: FDA-Public Use
  Company Number: BE-NOVOPROD-810668

PATIENT
  Age: 68 Year
  Sex: Female
  Weight: 74 kg

DRUGS (11)
  1. NOVORAPID [Suspect]
     Active Substance: INSULIN ASPART
     Dosage: 120 IU, SINGLE
     Dates: start: 20210505, end: 20210505
  2. LISINOPRIL. [Concomitant]
     Active Substance: LISINOPRIL
     Dosage: 20.0,MG,
     Dates: start: 19900607
  3. NOVORAPID [Suspect]
     Active Substance: INSULIN ASPART
     Indication: TYPE 2 DIABETES MELLITUS
     Dosage: 30.0,U,
     Dates: start: 20210412
  4. ACETYLSALICYLIC ACID [Concomitant]
     Active Substance: ASPIRIN
     Dosage: 80.0,MG,
     Dates: start: 20130823
  5. BISOPROLOL [Concomitant]
     Active Substance: BISOPROLOL
     Dosage: 10.0,MG,
     Dates: start: 20200221
  6. METFORMIN [Concomitant]
     Active Substance: METFORMIN HYDROCHLORIDE
     Dosage: 2550.0,MG,
     Dates: start: 20000727
  7. CLOPIDOGREL [Concomitant]
     Active Substance: CLOPIDOGREL BISULFATE
     Dosage: 75.0,MG,
     Dates: start: 20201201
  8. ISOSORBIDE MONONITRATE. [Concomitant]
     Active Substance: ISOSORBIDE MONONITRATE
     Dosage: 5.0,MG,
     Dates: start: 20140801
  9. ROSUVASTATIN. [Concomitant]
     Active Substance: ROSUVASTATIN
     Dosage: 40.0,MG,
     Dates: start: 20200221
  10. INSULIN GLARGINE [Concomitant]
     Active Substance: INSULIN GLARGINE
     Dosage: 32.0,U,
     Dates: start: 20210412
  11. EZETIMIBE. [Concomitant]
     Active Substance: EZETIMIBE
     Dosage: 10.0,MG,
     Dates: start: 20200221

REACTIONS (1)
  - Intentional overdose [Recovered/Resolved]

NARRATIVE: CASE EVENT DATE: 20210505
